FAERS Safety Report 4278151-4 (Version None)
Quarter: 2004Q1

REPORT INFORMATION
  Report Type: 
  Country: None (occurrence: None)
  Receive Date: 20040123
  Receipt Date: 20031216
  Transmission Date: 20041129
  Serious: Yes (Death)
  Sender: FDA-Public Use
  Company Number: 200311526JP

PATIENT
  Age: 71 Year
  Sex: Male

DRUGS (11)
  1. ARAVA [Suspect]
     Indication: RHEUMATOID ARTHRITIS
     Route: 048
     Dates: start: 20031116, end: 20031215
  2. PREDONINE [Concomitant]
     Indication: RHEUMATOID ARTHRITIS
     Route: 048
     Dates: start: 20031023, end: 20031215
  3. INDOMETHACIN [Concomitant]
     Indication: RHEUMATOID ARTHRITIS
     Route: 054
     Dates: end: 20031215
  4. GASTER [Concomitant]
     Indication: PROPHYLAXIS AGAINST GASTROINTESTINAL ULCER
     Route: 048
     Dates: end: 20031215
  5. ETODOLAC [Concomitant]
     Indication: RHEUMATOID ARTHRITIS
     Route: 048
     Dates: end: 20031215
  6. BLOPRESS [Concomitant]
     Indication: HYPERTENSION
     Route: 048
     Dates: end: 20031215
  7. HORIZON [Concomitant]
     Indication: GENERAL ANAESTHESIA
     Route: 042
     Dates: start: 20031216, end: 20031216
  8. PANCURONIUM BROMIDE [Concomitant]
     Indication: GENERAL ANAESTHESIA
     Route: 042
     Dates: start: 20031217, end: 20031226
  9. HORIZON [Concomitant]
     Route: 042
     Dates: start: 20031217, end: 20031226
  10. FUTHAN [Concomitant]
     Indication: DISSEMINATED INTRAVASCULAR COAGULATION
     Route: 041
     Dates: start: 20031217, end: 20031226
  11. HUMAN ANTI-THROMBIN III [Concomitant]
     Indication: DISSEMINATED INTRAVASCULAR COAGULATION
     Route: 041
     Dates: start: 20031217, end: 20031219

REACTIONS (15)
  - ASPARTATE AMINOTRANSFERASE INCREASED [None]
  - BLOOD CREATININE INCREASED [None]
  - BLOOD LACTATE DEHYDROGENASE INCREASED [None]
  - BLOOD PRESSURE DECREASED [None]
  - BLOOD UREA INCREASED [None]
  - CARDIAC ARREST [None]
  - CYTOMEGALOVIRUS INFECTION [None]
  - DISSEMINATED INTRAVASCULAR COAGULATION [None]
  - GAMMA-GLUTAMYLTRANSFERASE INCREASED [None]
  - HAEMOGLOBIN DECREASED [None]
  - INTERSTITIAL LUNG DISEASE [None]
  - MELAENA [None]
  - MUSCLE ENZYME INCREASED [None]
  - PLATELET COUNT DECREASED [None]
  - PNEUMOCYSTIS CARINII PNEUMONIA [None]
